FAERS Safety Report 4374215-5 (Version None)
Quarter: 2004Q2

REPORT INFORMATION
  Report Type: 
  Country: None (occurrence: None)
  Receive Date: 20040603
  Receipt Date: 20040527
  Transmission Date: 20050107
  Serious: Yes (Other)
  Sender: FDA-Public Use
  Company Number: 2004-05-0520

PATIENT
  Age: 30 Year
  Sex: Female

DRUGS (1)
  1. INTRON A [Suspect]
     Indication: HEPATITIS B
     Dates: start: 19940101, end: 19970101

REACTIONS (4)
  - AMENORRHOEA [None]
  - HYPOPITUITARISM [None]
  - OLIGOMENORRHOEA [None]
  - PITUITARY CYST [None]
